FAERS Safety Report 9058508 (Version 1)
Quarter: 2013Q1

REPORT INFORMATION
  Report Type: Spontaneous
  Country: DE (occurrence: DE)
  Receive Date: 20130211
  Receipt Date: 20130211
  Transmission Date: 20140127
  Serious: Yes (Other)
  Sender: FDA-Public Use
  Company Number: DE-JNJFOC-20130200187

PATIENT
  Age: 51 Year
  Sex: Female

DRUGS (1)
  1. EVRA [Suspect]
     Indication: PRODUCT USED FOR UNKNOWN INDICATION
     Dosage: 9 YEARS AGO
     Route: 062

REACTIONS (2)
  - Benign muscle neoplasm [Unknown]
  - Urinary tract infection [Unknown]
